FAERS Safety Report 7261961-9 (Version None)
Quarter: 2011Q1

REPORT INFORMATION
  Report Type: 
  Country: None (occurrence: None)
  Receive Date: 20110120
  Receipt Date: 20110105
  Transmission Date: 20110831
  Serious: No
  Sender: FDA-Public Use
  Company Number: 015072

PATIENT
  Sex: Male
  Weight: 95.3 kg

DRUGS (11)
  1. CHOLESTEROL [Concomitant]
  2. KEPPRA [Suspect]
     Indication: CONVULSION
     Dosage: (500 MG, 1500MG IN AM, 1500 MG IN PM ORAL)
     Route: 048
     Dates: start: 20050101, end: 20050101
  3. LORAZEPAM [Concomitant]
  4. HYPNOTICS AND SEDATIVES [Concomitant]
  5. DILANTIN [Concomitant]
  6. KEPPRA [Suspect]
     Indication: CONVULSION
     Dosage: (500 MG, 1500MG IN AM, 1500MG IN PM ORAL)
     Route: 048
     Dates: start: 20050101, end: 20101201
  7. TRIAMTERENE AND HYDROCHLOROTHIAZIDE [Concomitant]
  8. LEVETIRACETAM [Suspect]
     Indication: EPILEPSY
     Dosage: (500 MG, 1500MG IN AM, 1500MG IN PM-GENERIC LEVETIRACETAM ORAL)
     Route: 048
     Dates: start: 20101201
  9. ATENOLOL [Concomitant]
  10. CLONAZEPAM [Concomitant]
  11. REFLUX [Concomitant]

REACTIONS (4)
  - DRUG INEFFECTIVE [None]
  - GRAND MAL CONVULSION [None]
  - GINGIVITIS [None]
  - FEELING ABNORMAL [None]
